FAERS Safety Report 25351899 (Version 1)
Quarter: 2025Q2

REPORT INFORMATION
  Report Type: Spontaneous
  Country: BR (occurrence: BR)
  Receive Date: 20250523
  Receipt Date: 20250523
  Transmission Date: 20250717
  Serious: Yes (Other)
  Sender: ORGANON
  Company Number: BR-ORGANON-O2505BRA003360

PATIENT
  Age: 3 Year
  Sex: Female

DRUGS (2)
  1. NASONEX [Suspect]
     Active Substance: MOMETASONE FUROATE
     Indication: Sinusitis
     Dosage: 1 APPLICATION IN EACH NOSTRIL ONCE A DAY
     Route: 045
     Dates: start: 20250515
  2. AMOXICILLIN\CLAVULANIC ACID [Suspect]
     Active Substance: AMOXICILLIN\CLAVULANIC ACID
     Indication: Sinusitis
     Dosage: 8ML TWICE A DAY, ORALLY
     Route: 048
     Dates: start: 20250515

REACTIONS (4)
  - Heart rate increased [Recovered/Resolved]
  - Dyspnoea [Recovered/Resolved]
  - Nasal congestion [Recovered/Resolved]
  - Bronchitis [Recovered/Resolved]

NARRATIVE: CASE EVENT DATE: 20250516
